FAERS Safety Report 9765882 (Version 1)
Quarter: 2013Q4

REPORT INFORMATION
  Report Type: Spontaneous
  Country: US (occurrence: US)
  Receive Date: 20131217
  Receipt Date: 20131217
  Transmission Date: 20140711
  Serious: No
  Sender: FDA-Public Use
  Company Number: US-BIOGENIDEC-2013BI116044

PATIENT
  Age: 66 Year
  Sex: Female

DRUGS (11)
  1. TECFIDERA [Suspect]
     Indication: MULTIPLE SCLEROSIS
     Route: 048
     Dates: start: 201311
  2. TECFIDERA [Suspect]
     Indication: MULTIPLE SCLEROSIS
     Route: 048
     Dates: start: 20131114
  3. SOMA [Concomitant]
  4. CARVEDILOL [Concomitant]
  5. FAMOTIDINE [Concomitant]
  6. ALPRAZOLAM [Concomitant]
  7. VITAMIN B COMPLEX [Concomitant]
  8. ZETIA [Concomitant]
  9. FENOFIBRATE [Concomitant]
  10. CVS VITAMIN D [Concomitant]
  11. BABY ASPIRIN [Concomitant]

REACTIONS (6)
  - Hyperhidrosis [Unknown]
  - Headache [Unknown]
  - Pain [Unknown]
  - Abdominal discomfort [Unknown]
  - Vomiting [Unknown]
  - Abdominal pain upper [Unknown]
